FAERS Safety Report 6811672-6 (Version None)
Quarter: 2010Q3

REPORT INFORMATION
  Report Type: 
  Country: None (occurrence: None)
  Receive Date: 20100701
  Receipt Date: 20100622
  Transmission Date: 20110219
  Serious: No
  Sender: FDA-Public Use
  Company Number: US-BIOGENIDEC-2010BI021677

PATIENT
  Age: 52 Year
  Sex: Male

DRUGS (1)
  1. TYSABRI [Suspect]
     Indication: MULTIPLE SCLEROSIS
     Route: 042
     Dates: start: 20090902

REACTIONS (6)
  - ABDOMINAL PAIN UPPER [None]
  - CHILLS [None]
  - HEADACHE [None]
  - PYREXIA [None]
  - TREMOR [None]
  - VISION BLURRED [None]
